FAERS Safety Report 8582121-5 (Version None)
Quarter: 2012Q3

REPORT INFORMATION
  Report Type: 
  Country: None (occurrence: None)
  Receive Date: 20120809
  Receipt Date: 20120807
  Transmission Date: 20120928
  Serious: Yes (Other)
  Sender: FDA-Public Use
  Company Number: US-PFIZER INC-2012192453

PATIENT
  Age: 50 Year
  Sex: Female
  Weight: 50.34 kg

DRUGS (2)
  1. PRISTIQ [Suspect]
     Dosage: 100 MG, DAILY
     Dates: start: 20120101
  2. PRISTIQ [Suspect]
     Indication: DEPRESSION
     Dosage: UNK
     Dates: start: 20120101, end: 20120101

REACTIONS (3)
  - HEADACHE [None]
  - INTRAOCULAR PRESSURE INCREASED [None]
  - VISUAL IMPAIRMENT [None]
